FAERS Safety Report 7408486-5 (Version None)
Quarter: 2011Q2

REPORT INFORMATION
  Report Type: 
  Country: None (occurrence: None)
  Receive Date: 20110401
  Receipt Date: 20110215
  Transmission Date: 20111010
  Serious: Yes (Other)
  Sender: FDA-Public Use
  Company Number: 2011000481

PATIENT
  Age: 77 Year
  Sex: Female
  Weight: 61.22 kg

DRUGS (18)
  1. ALLEGRA [Concomitant]
  2. AMBIEN (SOLPIDEM TARTRATE) [Concomitant]
  3. PERIDEX (CHLORHEXIDINE GLUCONATE) [Concomitant]
  4. VITAMIN D [Concomitant]
  5. GLIPIZIDE [Concomitant]
  6. CALCIUM (CALCIUM) [Concomitant]
  7. LEVEMIR [Concomitant]
  8. ERLOTINIB (ERLOTINIB) (TABLET) (ERLOTINIB) [Suspect]
     Indication: HEPATIC NEOPLASM MALIGNANT
     Dosage: MG, ORAL
     Route: 048
     Dates: start: 20100617
  9. ALBUTEROL SULFATE [Concomitant]
  10. COZAAR [Concomitant]
  11. POTASSIUM CHLORIDE [Concomitant]
  12. ACULAR LS [Concomitant]
  13. ALBUTEROL [Concomitant]
  14. IMODIUM [Concomitant]
  15. NORVASC [Concomitant]
  16. SORAFENIB (TABLET) [Suspect]
     Indication: HEPATIC NEOPLASM MALIGNANT
     Dosage: 200 MG, BID, ORAL
     Route: 048
     Dates: start: 20100617
  17. COLCHICINE [Concomitant]
  18. MULTIPLEVITAMIN PREPARATION + MINERAL SUPPLEMENT [Concomitant]

REACTIONS (1)
  - ENCEPHALOPATHY [None]
